FAERS Safety Report 6723553-7 (Version None)
Quarter: 2010Q2

REPORT INFORMATION
  Report Type: 
  Country: None (occurrence: None)
  Receive Date: 20100501
  Receipt Date: 20100504
  Transmission Date: 20101027
  Serious: Yes (Other)
  Sender: FDA-Public Use
  Company Number: 2010SP018997

PATIENT
  Age: 30 Year
  Sex: Female

DRUGS (2)
  1. IMPLANON [Suspect]
     Indication: DRUG USE FOR UNKNOWN INDICATION
     Dosage: 68 MG;SC
     Route: 058
     Dates: start: 20080530, end: 20100330
  2. ACIDOVIR CREAM 5% [Concomitant]

REACTIONS (1)
  - RETINAL VEIN OCCLUSION [None]
